FAERS Safety Report 11511651 (Version 1)
Quarter: 2015Q3

REPORT INFORMATION
  Report Type: Spontaneous
  Country: US (occurrence: US)
  Receive Date: 20150915
  Receipt Date: 20150915
  Transmission Date: 20151125
  Serious: Yes (Other)
  Sender: FDA-Public Use
  Company Number: US-TAKEDA-TPA2013A07182

PATIENT

DRUGS (10)
  1. LEVEMIR [Concomitant]
     Active Substance: INSULIN DETEMIR
     Dosage: 100 IU, UNK
     Dates: start: 200807, end: 2009
  2. GLUCOVANCE [Concomitant]
     Active Substance: GLYBURIDE\METFORMIN HYDROCHLORIDE
     Indication: DIABETES MELLITUS
     Dosage: 5/500 MG, UNK
     Dates: start: 20040601, end: 20090728
  3. PRANDIN                            /01393601/ [Concomitant]
     Dosage: 0.5 MG, UNK, FOR SEVERAL MONTHS
     Dates: start: 20060113
  4. HUMALOG [Concomitant]
     Active Substance: INSULIN LISPRO
     Dosage: 30 IU, UNK
     Dates: start: 2012
  5. DIABETA                            /00145301/ [Concomitant]
     Dosage: 100 IU, UNK
     Dates: start: 2010, end: 2013
  6. INSULIN                            /01223401/ [Concomitant]
     Indication: DIABETES MELLITUS
     Dosage: UNK
     Dates: start: 200807
  7. LANTUS [Concomitant]
     Active Substance: INSULIN GLARGINE
     Dosage: 100 U/ML, UNK
     Dates: start: 20060313, end: 2013
  8. ACTOS [Suspect]
     Active Substance: PIOGLITAZONE HYDROCHLORIDE
     Indication: TYPE 2 DIABETES MELLITUS
     Dosage: 30 MG, UNK
     Route: 048
     Dates: start: 200406, end: 200407
  9. JANUVIA [Concomitant]
     Active Substance: SITAGLIPTIN PHOSPHATE
     Dosage: 100 MG, UNK
     Dates: start: 200706, end: 200901
  10. ACTOS [Suspect]
     Active Substance: PIOGLITAZONE HYDROCHLORIDE
     Dosage: 45 MG, UNK
     Route: 048
     Dates: start: 200408, end: 200807

REACTIONS (1)
  - Bladder cancer [Unknown]

NARRATIVE: CASE EVENT DATE: 200809
